FAERS Safety Report 8558084-5 (Version None)
Quarter: 2012Q3

REPORT INFORMATION
  Report Type: 
  Country: None (occurrence: None)
  Receive Date: 20120801
  Receipt Date: 20120719
  Transmission Date: 20120928
  Serious: No
  Sender: FDA-Public Use
  Company Number: US-ASTRAZENECA-2012SE50780

PATIENT
  Age: 85 Year
  Sex: Female
  Weight: 81.6 kg

DRUGS (9)
  1. AMLODIPINE [Concomitant]
     Indication: BLOOD PRESSURE ABNORMAL
  2. LAMOTRIGINE [Concomitant]
  3. CHOLESTEROL MEDICATION [Concomitant]
  4. GABAPENTIN [Concomitant]
     Indication: RESTLESS LEGS SYNDROME
  5. LEVOTHYROXINE SODIUM [Concomitant]
     Indication: THYROID DISORDER
  6. CITALOPRAM HYDROBROMIDE [Concomitant]
  7. SEROQUEL XR [Suspect]
     Indication: MAJOR DEPRESSION
     Route: 048
  8. HYDROCHLOROTHIAZIDE [Concomitant]
     Indication: BLOOD PRESSURE ABNORMAL
  9. AMITRIPTLINE HYDROCHLORIDE TAB [Concomitant]

REACTIONS (5)
  - DIZZINESS [None]
  - FALL [None]
  - MEMORY IMPAIRMENT [None]
  - SLEEP APNOEA SYNDROME [None]
  - DRY MOUTH [None]
